FAERS Safety Report 9194723 (Version 1)
Quarter: 2013Q1

REPORT INFORMATION
  Report Type: Spontaneous
  Country: None (occurrence: US)
  Receive Date: 20130327
  Receipt Date: 20130327
  Transmission Date: 20140127
  Serious: No
  Sender: FDA-Public Use
  Company Number: US-ALLERGAN-1207668US

PATIENT
  Age: 52 Year
  Sex: Female

DRUGS (3)
  1. LATISSE 0.03% [Suspect]
     Indication: GROWTH OF EYELASHES
     Dosage: 2 GTT, QHS
     Route: 061
     Dates: start: 201205, end: 20120530
  2. REFRESH TEARS [Concomitant]
     Indication: DRY EYE
     Dosage: UNK
     Route: 047
  3. REFRESH PM                         /00880201/ [Concomitant]
     Indication: DRY EYE
     Dosage: UNK
     Route: 047

REACTIONS (4)
  - Inappropriate schedule of drug administration [Unknown]
  - Skin discolouration [Unknown]
  - Madarosis [Unknown]
  - Eyelid irritation [Recovered/Resolved]
